FAERS Safety Report 9741327 (Version 1)
Quarter: 2013Q4

REPORT INFORMATION
  Report Type: Spontaneous
  Country: US (occurrence: US)
  Receive Date: 20131209
  Receipt Date: 20131209
  Transmission Date: 20140711
  Serious: Yes (Other)
  Sender: FDA-Public Use
  Company Number: US-TEVA-449963USA

PATIENT
  Sex: Female

DRUGS (3)
  1. FENTANYL [Suspect]
     Route: 048
  2. CODEINE [Suspect]
     Route: 048
  3. ANTIHISTAMINES [Suspect]
     Route: 048

REACTIONS (1)
  - Suicide attempt [Unknown]
